FAERS Safety Report 16292280 (Version 1)
Quarter: 2019Q2

REPORT INFORMATION
  Report Type: Spontaneous
  Country: CN (occurrence: CN)
  Receive Date: 20190509
  Receipt Date: 20190509
  Transmission Date: 20190711
  Serious: Yes (Other)
  Sender: FDA-Public Use
  Company Number: CN-BAXTER-2019BAX009134

PATIENT
  Age: 59 Year
  Sex: Female
  Weight: 75 kg

DRUGS (2)
  1. ENDOXAN [Suspect]
     Active Substance: CYCLOPHOSPHAMIDE
     Indication: NEUROMYELITIS OPTICA SPECTRUM DISORDER
     Dosage: DOSAGE FORM: INJECTION
     Route: 041
     Dates: start: 20190226, end: 20190226
  2. ENDOXAN [Suspect]
     Active Substance: CYCLOPHOSPHAMIDE
     Dosage: DOSAGE FORM: INJECTION
     Route: 041
     Dates: start: 20190305, end: 20190305

REACTIONS (5)
  - Respiratory alkalosis [Recovered/Resolved]
  - Abdominal discomfort [Unknown]
  - Tremor [Unknown]
  - Poor quality sleep [Unknown]
  - Nausea [Unknown]

NARRATIVE: CASE EVENT DATE: 201903
